FAERS Safety Report 9086870 (Version 2)
Quarter: 2013Q2

REPORT INFORMATION
  Report Type: Spontaneous
  Country: US (occurrence: US)
  Receive Date: 20130131
  Receipt Date: 20130416
  Transmission Date: 20140414
  Serious: Yes (Hospitalization, Other)
  Sender: FDA-Public Use
  Company Number: US-PFIZER INC-2013034645

PATIENT
  Age: 68 Year
  Sex: Female
  Weight: 122 kg

DRUGS (4)
  1. REVATIO [Suspect]
     Indication: PULMONARY HYPERTENSION
     Dosage: 20 MG, 3X/DAY
     Route: 048
     Dates: start: 201301, end: 201301
  2. REVATIO [Suspect]
     Dosage: UNK
     Route: 048
  3. COUMADIN [Suspect]
     Indication: ATRIAL FIBRILLATION
     Dosage: UNK
  4. CUMADIN [Concomitant]
     Dosage: UNK

REACTIONS (4)
  - Blood disorder [Unknown]
  - Gastrointestinal haemorrhage [Recovered/Resolved]
  - Neck pain [Recovered/Resolved]
  - Headache [Recovered/Resolved]
